FAERS Safety Report 10717701 (Version 1)
Quarter: 2015Q1

REPORT INFORMATION
  Report Type: Spontaneous
  Country: US (occurrence: US)
  Receive Date: 20150116
  Receipt Date: 20150116
  Transmission Date: 20150721
  Serious: Yes (Death)
  Sender: FDA-Public Use
  Company Number: US-BAYER-2015-005464

PATIENT
  Age: 42 Year
  Sex: Female

DRUGS (10)
  1. ROMILAR [Suspect]
     Active Substance: DEXTROMETHORPHAN HYDROBROMIDE
  2. DOXYLAMINE [Suspect]
     Active Substance: DOXYLAMINE
  3. BUSPIRONE [Suspect]
     Active Substance: BUSPIRONE HYDROCHLORIDE
  4. FENTANYL. [Suspect]
     Active Substance: FENTANYL
  5. DOXEPIN [Suspect]
     Active Substance: DOXEPIN
  6. CITALOPRAM [Suspect]
     Active Substance: CITALOPRAM HYDROBROMIDE
  7. QUETIAPINE [Suspect]
     Active Substance: QUETIAPINE
  8. DIPHENHYDRAMINE HYDROCHLORIDE. [Suspect]
     Active Substance: DIPHENHYDRAMINE HYDROCHLORIDE
  9. ACETAMINOPHEN. [Suspect]
     Active Substance: ACETAMINOPHEN
  10. ISOPROPANOL [Suspect]
     Active Substance: ISOPROPANOLAMINE

REACTIONS (1)
  - Drug abuse [Fatal]
